FAERS Safety Report 25319458 (Version 1)
Quarter: 2025Q2

REPORT INFORMATION
  Report Type: Spontaneous
  Country: PT (occurrence: PT)
  Receive Date: 20250515
  Receipt Date: 20250515
  Transmission Date: 20250717
  Serious: Yes (Life-Threatening, Hospitalization, Other)
  Sender: EXELA PHARMA SCIENCES
  Company Number: PT-EXELAPHARMA-2025EXLA00075

PATIENT
  Age: 37 Year
  Sex: Male

DRUGS (10)
  1. TRANEXAMIC ACID [Suspect]
     Active Substance: TRANEXAMIC ACID
     Indication: Haemorrhage
  2. Unspecified vasopressors [Concomitant]
     Indication: Haemorrhage
  3. Packed red blood cells (pRBC) [Concomitant]
     Indication: Haemorrhage
  4. Packed red blood cells (pRBC) [Concomitant]
  5. FRESH FROZEN PLASMA [Concomitant]
     Active Substance: HUMAN PLASMA
     Indication: Haemorrhage
  6. FRESH FROZEN PLASMA [Concomitant]
     Active Substance: HUMAN PLASMA
  7. PLATELETS [Concomitant]
     Active Substance: HUMAN PLATELET, ALLOGENIC
     Indication: Haemorrhage
  8. PLATELETS [Concomitant]
     Active Substance: HUMAN PLATELET, ALLOGENIC
  9. FIBRINOGEN [Concomitant]
     Active Substance: FIBRINOGEN HUMAN
     Indication: Haemorrhage
  10. Prothrombin concentrate [Concomitant]
     Indication: Haemorrhage

REACTIONS (3)
  - Drug ineffective for unapproved indication [Recovered/Resolved]
  - Condition aggravated [Recovered/Resolved]
  - Cardiac arrest [Recovered/Resolved]
